FAERS Safety Report 4788152-5 (Version None)
Quarter: 2005Q4

REPORT INFORMATION
  Report Type: 
  Country: None (occurrence: None)
  Receive Date: 20051005
  Receipt Date: 20050829
  Transmission Date: 20060501
  Serious: Yes (Hospitalization)
  Sender: FDA-Public Use
  Company Number: JP-BOEHRINGER INGELHEIM PHARMACEUTICALS, INC.-2005-BP-15214NB

PATIENT
  Sex: Male

DRUGS (5)
  1. SPIRIVA [Suspect]
     Indication: CHRONIC OBSTRUCTIVE PULMONARY DISEASE
     Route: 055
     Dates: start: 20050520, end: 20050720
  2. UNIPHYL [Concomitant]
     Route: 048
     Dates: start: 20040101
  3. KIPRES [Concomitant]
     Route: 048
     Dates: start: 20040101
  4. QVAR 40 [Concomitant]
     Route: 055
     Dates: start: 20040901
  5. KLARICID [Concomitant]
     Route: 048
     Dates: start: 20040501

REACTIONS (5)
  - HYPOAESTHESIA ORAL [None]
  - ORAL PAIN [None]
  - PHARYNGOLARYNGEAL PAIN [None]
  - PYREXIA [None]
  - SWELLING FACE [None]
